FAERS Safety Report 8438476 (Version 3)
Quarter: 2012Q4

REPORT INFORMATION
  Report Type: 
  Country: US (occurrence: US)
  Receive Date: 20120302
  Receipt Date: 20121025
  Transmission Date: 20130627
  Serious: No
  Sender: FDA-Public Use
  Company Number: US-PFIZER INC-2012051416

PATIENT
  Sex: Female

DRUGS (4)
  1. ALTACE [Suspect]
     Dosage: UNK
  2. SYSTANE ULTRA [Suspect]
     Indication: DRY EYE
     Dosage: UNK
  3. RESTASIS [Suspect]
     Dosage: UNK
  4. ACUVAIL [Suspect]
     Indication: DRY EYE
     Dosage: UNK

REACTIONS (1)
  - Drug ineffective [Unknown]
